FAERS Safety Report 7914875-2 (Version None)
Quarter: 2011Q4

REPORT INFORMATION
  Report Type: 
  Country: None (occurrence: None)
  Receive Date: 20111115
  Receipt Date: 20111110
  Transmission Date: 20120403
  Serious: Yes (Hospitalization, Other)
  Sender: FDA-Public Use
  Company Number: FR-PFIZER INC-2011277757

PATIENT
  Age: 3 Year
  Sex: Male

DRUGS (1)
  1. PEDIATRIC ADVIL [Suspect]
     Indication: CELLULITIS
     Dosage: UNK

REACTIONS (1)
  - CELLULITIS [None]
